FAERS Safety Report 6050914-4 (Version None)
Quarter: 2009Q1

REPORT INFORMATION
  Report Type: 
  Country: None (occurrence: None)
  Receive Date: 20090126
  Receipt Date: 20080603
  Transmission Date: 20090719
  Serious: Yes (Other)
  Sender: FDA-Public Use
  Company Number: US-TYCO HEALTHCARE/MALLINCKRODT-T200800790

PATIENT

DRUGS (1)
  1. OPTIRAY 300 [Suspect]
     Indication: COMPUTERISED TOMOGRAM
     Dosage: 80 UNK, SINGLE
     Route: 042
     Dates: start: 20080422, end: 20080422

REACTIONS (2)
  - PRURITUS [None]
  - THROAT TIGHTNESS [None]
